FAERS Safety Report 6687847-6 (Version None)
Quarter: 2010Q2

REPORT INFORMATION
  Report Type: 
  Country: None (occurrence: None)
  Receive Date: 20100409
  Receipt Date: 20090616
  Transmission Date: 20101027
  Serious: Yes (Hospitalization)
  Sender: FDA-Public Use
  Company Number: AE 2009-076

PATIENT
  Age: 39 Year
  Sex: Male

DRUGS (7)
  1. FAZACLO ODT [Suspect]
     Indication: SCHIZOPHRENIA
     Dosage: 800 MG DAILY PO
     Route: 048
     Dates: start: 20060801, end: 20090404
  2. KLONOPIN [Concomitant]
  3. ZYPREXA [Concomitant]
  4. PAXIL [Concomitant]
  5. LITHIUM CARBONATE [Concomitant]
  6. DEPAKOTE [Concomitant]
  7. COGENTIN [Concomitant]

REACTIONS (4)
  - CONVULSION [None]
  - NEUROLEPTIC MALIGNANT SYNDROME [None]
  - PYREXIA [None]
  - RESPIRATORY ARREST [None]
